FAERS Safety Report 23908143 (Version 1)
Quarter: 2024Q2

REPORT INFORMATION
  Report Type: Spontaneous
  Country: US (occurrence: None)
  Receive Date: 20240524
  Receipt Date: 20240524
  Transmission Date: 20240715
  Serious: Yes (Other)
  Sender: FDA-Public Use
  Company Number: None

PATIENT
  Age: 49 Year
  Sex: 0

DRUGS (9)
  1. EVEROLIMUS [Suspect]
     Active Substance: EVEROLIMUS
     Indication: Breast cancer
     Dosage: FREQUENCY : DAILY;?
     Route: 048
     Dates: start: 20240404, end: 20240520
  2. FASLODEX [Concomitant]
     Active Substance: FULVESTRANT
  3. Exgeva [Concomitant]
  4. OMEPRAZOLE [Concomitant]
     Active Substance: DONEPEZIL HYDROCHLORIDE\OMEPRAZOLE\OMEPRAZOLE MAGNESIUM
  5. PREDNISONE [Concomitant]
     Active Substance: PREDNISONE
  6. LORATADINE [Concomitant]
     Active Substance: LORATADINE
  7. MELOXICAM [Concomitant]
     Active Substance: MELOXICAM
  8. MORPHINE [Concomitant]
     Active Substance: MORPHINE
  9. gabaoentin [Concomitant]

REACTIONS (2)
  - Rash [None]
  - Therapy cessation [None]
